FAERS Safety Report 23482617 (Version 1)
Quarter: 2024Q1

REPORT INFORMATION
  Report Type: Spontaneous
  Country: US (occurrence: None)
  Receive Date: 20240205
  Receipt Date: 20240205
  Transmission Date: 20240410
  Serious: Yes (Death, Other)
  Sender: FDA-Public Use
  Company Number: 2024A027160

PATIENT
  Age: 27 Year
  Sex: Female

DRUGS (2)
  1. FASLODEX [Suspect]
     Active Substance: FULVESTRANT
     Indication: Ovarian cancer
     Dosage: 500 MG ON DAYS 1, 15, 29, AND SUBSEQUENTLY EVERY 28 DAYS
     Route: 030
     Dates: start: 201903
  2. EVEROLIMUS [Suspect]
     Active Substance: EVEROLIMUS
     Indication: Ovarian cancer
     Dosage: 10MG, DAILY
     Dates: start: 201905

REACTIONS (3)
  - Malignant pleural effusion [Fatal]
  - Malignant neoplasm progression [Fatal]
  - Off label use [Unknown]
